FAERS Safety Report 9071974 (Version 7)
Quarter: 2013Q4

REPORT INFORMATION
  Report Type: Spontaneous
  Country: CA (occurrence: CA)
  Receive Date: 20130129
  Receipt Date: 20131121
  Transmission Date: 20140711
  Serious: Yes (Other)
  Sender: FDA-Public Use
  Company Number: CA-ROCHE-1184902

PATIENT
  Age: 61 Year
  Sex: Male

DRUGS (6)
  1. XOLAIR [Suspect]
     Indication: ASTHMA
     Route: 058
     Dates: start: 20120828
  2. XOLAIR [Suspect]
     Route: 058
     Dates: start: 20130122
  3. XOLAIR [Suspect]
     Route: 065
     Dates: start: 20131008
  4. VENTOLIN [Concomitant]
  5. SYMBICORT [Concomitant]
  6. COZAAR [Concomitant]

REACTIONS (6)
  - Blood pressure increased [Unknown]
  - Dyspnoea [Unknown]
  - Rhinorrhoea [Unknown]
  - Asthma [Unknown]
  - Drug ineffective [Unknown]
  - Heart rate decreased [Unknown]
